FAERS Safety Report 12669565 (Version 5)
Quarter: 2016Q4

REPORT INFORMATION
  Report Type: Report from Study
  Country: US (occurrence: US)
  Receive Date: 20160819
  Receipt Date: 20161124
  Transmission Date: 20170207
  Serious: Yes (Disabling, Other)
  Sender: FDA-Public Use
  Company Number: US-AMGEN-USASP2016106030

PATIENT
  Age: 66 Year
  Sex: Male

DRUGS (3)
  1. REPATHA [Suspect]
     Active Substance: EVOLOCUMAB
     Indication: BLOOD CHOLESTEROL INCREASED
     Dosage: 140 MG, Q2WK
     Route: 065
     Dates: start: 201602, end: 20160727
  2. REPATHA [Suspect]
     Active Substance: EVOLOCUMAB
     Indication: BLOOD TRIGLYCERIDES ABNORMAL
  3. INSULIN [Concomitant]
     Active Substance: INSULIN NOS
     Dosage: UNK

REACTIONS (22)
  - Pain in extremity [Not Recovered/Not Resolved]
  - Psychomotor hyperactivity [Unknown]
  - Peripheral swelling [Recovering/Resolving]
  - Muscle contractions involuntary [Unknown]
  - Musculoskeletal pain [Unknown]
  - Muscle atrophy [Not Recovered/Not Resolved]
  - Ligament disorder [Unknown]
  - Speech disorder [Unknown]
  - Muscle swelling [Recovered/Resolved]
  - Myalgia [Not Recovered/Not Resolved]
  - Asthenia [Not Recovered/Not Resolved]
  - Suicidal ideation [Unknown]
  - Impaired work ability [Unknown]
  - Muscle disorder [Not Recovered/Not Resolved]
  - Abasia [Not Recovered/Not Resolved]
  - Mobility decreased [Not Recovered/Not Resolved]
  - Arthralgia [Not Recovered/Not Resolved]
  - Wrong technique in product usage process [Unknown]
  - Muscle spasms [Not Recovered/Not Resolved]
  - Injection site haematoma [Recovered/Resolved]
  - Tendon disorder [Unknown]
  - Injection site mass [Recovered/Resolved]

NARRATIVE: CASE EVENT DATE: 2016
